FAERS Safety Report 16023213 (Version 1)
Quarter: 2019Q1

REPORT INFORMATION
  Report Type: Spontaneous
  Country: US (occurrence: US)
  Receive Date: 20190301
  Receipt Date: 20190301
  Transmission Date: 20190418
  Serious: No
  Sender: FDA-Public Use
  Company Number: US-BAYER-2019-036457

PATIENT
  Age: 15 Year
  Sex: Female
  Weight: 60 kg

DRUGS (2)
  1. SYNTHROID [Concomitant]
     Active Substance: LEVOTHYROXINE SODIUM
     Indication: TURNER^S SYNDROME
     Dosage: UNK UNK, QD
     Dates: start: 2018
  2. ESTRADIOL. [Suspect]
     Active Substance: ESTRADIOL
     Indication: TURNER^S SYNDROME
     Dosage: UNK
     Route: 062
     Dates: start: 2017

REACTIONS (4)
  - Wrong technique in product usage process [None]
  - Inappropriate schedule of product administration [None]
  - Product use in unapproved indication [None]
  - Product use issue [None]
